FAERS Safety Report 20827676 (Version 1)
Quarter: 2022Q2

REPORT INFORMATION
  Report Type: Spontaneous
  Country: US (occurrence: US)
  Receive Date: 20220513
  Receipt Date: 20220513
  Transmission Date: 20220721
  Serious: No
  Sender: FDA-Public Use
  Company Number: US-PFIZER INC-202200650036

PATIENT
  Age: 87 Year
  Sex: Female

DRUGS (2)
  1. TESSALON [Suspect]
     Active Substance: BENZONATATE
     Dosage: UNK
  2. RITUXAN [Concomitant]
     Active Substance: RITUXIMAB
     Dosage: UNK

REACTIONS (1)
  - Irritability [Unknown]
